FAERS Safety Report 16359712 (Version 1)
Quarter: 2019Q2

REPORT INFORMATION
  Report Type: Spontaneous
  Country: US (occurrence: US)
  Receive Date: 20190528
  Receipt Date: 20190528
  Transmission Date: 20190711
  Serious: Yes (Death, Other)
  Sender: FDA-Public Use
  Company Number: US-SHILPA MEDICARE LIMITED-SML-US-2019-00122

PATIENT
  Age: 82 Year
  Sex: Male

DRUGS (2)
  1. AZACITIDINE, UNKNOWN [Suspect]
     Active Substance: AZACITIDINE
     Indication: MYELODYSPLASTIC SYNDROME
     Dosage: 50 MG/M2 FOR 7 DAYS PER CYCLE
     Route: 065
  2. AZACITIDINE, UNKNOWN [Suspect]
     Active Substance: AZACITIDINE
     Route: 065

REACTIONS (5)
  - Enterovirus infection [Unknown]
  - Platelet count increased [Unknown]
  - Death [Fatal]
  - Febrile neutropenia [Unknown]
  - Rhinovirus infection [Unknown]
